FAERS Safety Report 9008618 (Version 1)
Quarter: 2013Q1

REPORT INFORMATION
  Report Type: Spontaneous
  Country: US (occurrence: US)
  Receive Date: 20130111
  Receipt Date: 20130111
  Transmission Date: 20140127
  Serious: No
  Sender: FDA-Public Use
  Company Number: US-MYLANLABS-2012S1021243

PATIENT
  Age: 61 Year
  Sex: Female
  Weight: 59.88 kg

DRUGS (5)
  1. IBANDRONATE SODIUM TABLETS [Suspect]
     Indication: OSTEOPOROSIS
     Route: 048
     Dates: start: 201205
  2. LYRICA [Concomitant]
     Indication: FIBROMYALGIA
  3. VICODIN [Concomitant]
     Indication: BACK PAIN
  4. WELLBUTRIN [Concomitant]
     Indication: DEPRESSION
  5. FLURAZEPAM [Concomitant]
     Indication: ANXIETY

REACTIONS (2)
  - Influenza like illness [Not Recovered/Not Resolved]
  - Asthenia [Not Recovered/Not Resolved]
